FAERS Safety Report 23064187 (Version 1)
Quarter: 2023Q4

REPORT INFORMATION
  Report Type: Report from Study
  Country: US (occurrence: US)
  Receive Date: 20231013
  Receipt Date: 20231013
  Transmission Date: 20240110
  Serious: Yes (Other)
  Sender: FDA-Public Use
  Company Number: US-BIOVITRUM-2023-US-015019

PATIENT
  Age: 61 Year
  Sex: Male

DRUGS (1)
  1. KINERET [Suspect]
     Active Substance: ANAKINRA
     Indication: Rheumatoid arthritis
     Dosage: 100, MG QD
     Route: 058
     Dates: start: 20230922

REACTIONS (7)
  - Product dose omission issue [Unknown]
  - Myocarditis [Unknown]
  - Injection site swelling [Unknown]
  - Injection site erythema [Unknown]
  - Injection site pain [Unknown]
  - Blood pressure decreased [Unknown]
  - Loss of consciousness [Unknown]
